FAERS Safety Report 8056858-0 (Version None)
Quarter: 2012Q1

REPORT INFORMATION
  Report Type: 
  Country: None (occurrence: None)
  Receive Date: 20120119
  Receipt Date: 20110801
  Transmission Date: 20120608
  Serious: No
  Sender: FDA-Public Use
  Company Number: US-SANOFI-AVENTIS-2011SA051106

PATIENT
  Age: 80 Year
  Sex: Male

DRUGS (30)
  1. METOPROLOL TARTRATE [Concomitant]
     Route: 048
     Dates: start: 20101010
  2. ASPIRIN [Concomitant]
     Indication: CORONARY ARTERY DISEASE
     Route: 048
     Dates: start: 19920101
  3. WARFARIN SODIUM [Concomitant]
     Indication: ATRIAL FIBRILLATION
     Route: 048
     Dates: start: 20041024
  4. POTASSIUM GLUCONATE TAB [Concomitant]
     Route: 048
     Dates: start: 20061128, end: 20101111
  5. DARVOCET-N 50 [Concomitant]
     Route: 048
     Dates: start: 20101004
  6. DIGITALIS TAB [Concomitant]
     Route: 048
     Dates: start: 20101014, end: 20101015
  7. CARDIZEM [Concomitant]
     Indication: ATRIAL FIBRILLATION
     Route: 048
     Dates: start: 20080925, end: 20100814
  8. INFLUENZA VIRUS VACCINE [Concomitant]
     Route: 030
     Dates: start: 20101012, end: 20101012
  9. METOPROLOL TARTRATE [Concomitant]
     Route: 048
     Dates: start: 20101010
  10. ROSUVASTATIN [Concomitant]
     Route: 048
     Dates: start: 20050101
  11. XALATAN [Concomitant]
     Indication: GLAUCOMA
     Dosage: ROUTE: OPTHALMIC; FORM: GTTS
     Dates: start: 20060101
  12. DIGITALIS TAB [Concomitant]
     Route: 048
     Dates: start: 20101210
  13. LASIX [Suspect]
     Route: 042
     Dates: start: 20101013, end: 20101013
  14. LASIX [Suspect]
     Route: 042
     Dates: start: 20101011, end: 20101011
  15. SPIRONOLACTONE [Suspect]
     Route: 048
     Dates: start: 20101013
  16. METOPROLOL TARTRATE [Concomitant]
     Indication: CORONARY ARTERY DISEASE
     Route: 048
     Dates: start: 20061229
  17. LASIX [Suspect]
     Route: 048
     Dates: start: 20101015, end: 20101111
  18. CARDIZEM [Concomitant]
     Route: 048
     Dates: start: 20100909
  19. ARICEPT [Concomitant]
     Indication: DEMENTIA
     Route: 048
     Dates: start: 20091020
  20. POTASSIUM CHLORIDE [Concomitant]
     Route: 048
     Dates: start: 20101012
  21. DIGITALIS TAB [Concomitant]
     Indication: ATRIAL FIBRILLATION
     Dosage: FREQUENCY: Q24 HR X4
     Route: 042
     Dates: start: 20101013, end: 20101013
  22. LASIX [Suspect]
     Route: 042
     Dates: start: 20101012, end: 20101012
  23. ALPHAGAN [Concomitant]
     Indication: GLAUCOMA
     Dosage: ROUTE: OPTHALMIC; FORM: GTTS
     Dates: start: 20060101
  24. DIGOXIN [Concomitant]
     Indication: ATRIAL FIBRILLATION
     Route: 048
     Dates: start: 20061024, end: 20100814
  25. ESOMEPRAZOLE SODIUM [Concomitant]
     Route: 048
     Dates: start: 20101011, end: 20101014
  26. LASIX [Suspect]
     Route: 048
     Dates: start: 20061128
  27. SPIRONOLACTONE [Suspect]
     Route: 048
     Dates: start: 20070227, end: 20101111
  28. DRONEDARONE HCL [Suspect]
     Route: 048
  29. ZOLPIDEM [Concomitant]
     Route: 048
     Dates: start: 20101011, end: 20101014
  30. METOPROLOL TARTRATE [Concomitant]
     Indication: HYPERTENSION
     Route: 048
     Dates: start: 20061229

REACTIONS (2)
  - POLLAKIURIA [None]
  - MICTURITION URGENCY [None]
